FAERS Safety Report 17884365 (Version 3)
Quarter: 2021Q2

REPORT INFORMATION
  Report Type: Spontaneous
  Country: US (occurrence: US)
  Receive Date: 20200611
  Receipt Date: 20210503
  Transmission Date: 20210717
  Serious: No
  Sender: FDA-Public Use
  Company Number: US-PFIZER INC-2020226614

PATIENT
  Age: 81 Year
  Sex: Female

DRUGS (3)
  1. VYNDAMAX [Suspect]
     Active Substance: TAFAMIDIS
     Dosage: 80 MG
  2. VYNDAQEL [Suspect]
     Active Substance: TAFAMIDIS MEGLUMINE
     Dosage: UNK
  3. VYNDAMAX [Suspect]
     Active Substance: TAFAMIDIS
     Dosage: 61 MG

REACTIONS (4)
  - Malaise [Unknown]
  - Off label use [Unknown]
  - Product dispensing error [Unknown]
  - Product dose omission issue [Unknown]
